FAERS Safety Report 10516804 (Version 1)
Quarter: 2014Q4

REPORT INFORMATION
  Report Type: Other
  Country: BR (occurrence: BR)
  Receive Date: 20141014
  Receipt Date: 20141014
  Transmission Date: 20150528
  Serious: Yes (Death)
  Sender: FDA-Public Use
  Company Number: BR-BRISTOL-MYERS SQUIBB COMPANY-21491725

PATIENT
  Age: 39 Year
  Sex: Male

DRUGS (5)
  1. CISPLATIN. [Suspect]
     Active Substance: CISPLATIN
  2. GEMCITABINE [Suspect]
     Active Substance: GEMCITABINE\GEMCITABINE HYDROCHLORIDE
     Dosage: TOTAL DOSE 15000 MG/M2.
  3. ETOPOSIDE. [Suspect]
     Active Substance: ETOPOSIDE
  4. PACLITAXEL. [Suspect]
     Active Substance: PACLITAXEL
  5. CARBOPLATIN. [Suspect]
     Active Substance: CARBOPLATIN

REACTIONS (1)
  - Thrombotic microangiopathy [Fatal]
